FAERS Safety Report 15955933 (Version 2)
Quarter: 2019Q1

REPORT INFORMATION
  Report Type: Report from Study
  Country: GB (occurrence: GB)
  Receive Date: 20190213
  Receipt Date: 20190216
  Transmission Date: 20190417
  Serious: Yes (Other)
  Sender: FDA-Public Use
  Company Number: GB-ROCHE-1629676

PATIENT
  Sex: Male

DRUGS (3)
  1. ESBRIET [Suspect]
     Active Substance: PIRFENIDONE
     Indication: IDIOPATHIC PULMONARY FIBROSIS
     Route: 048
     Dates: start: 20140703
  2. OMEPRAZOLE. [Concomitant]
     Active Substance: OMEPRAZOLE
     Indication: GASTROOESOPHAGEAL REFLUX DISEASE
  3. LANSOPRAZOLE. [Concomitant]
     Active Substance: LANSOPRAZOLE

REACTIONS (42)
  - Umbilical hernia [Unknown]
  - Psoriasis [Unknown]
  - Haemoptysis [Unknown]
  - Pain [Unknown]
  - Oxygen saturation decreased [Unknown]
  - Gastric disorder [Not Recovered/Not Resolved]
  - Nerve compression [Unknown]
  - Hypoaesthesia [Not Recovered/Not Resolved]
  - Pulmonary pain [Not Recovered/Not Resolved]
  - Fatigue [Unknown]
  - Gastrooesophageal reflux disease [Unknown]
  - Productive cough [Unknown]
  - Scab [Unknown]
  - Lower respiratory tract infection [Recovered/Resolved]
  - Condition aggravated [Not Recovered/Not Resolved]
  - Inguinal hernia [Unknown]
  - Abdominal pain upper [Not Recovered/Not Resolved]
  - Nasal discomfort [Not Recovered/Not Resolved]
  - Dyspnoea [Not Recovered/Not Resolved]
  - Nausea [Recovering/Resolving]
  - Decreased appetite [Not Recovered/Not Resolved]
  - Paraesthesia [Not Recovered/Not Resolved]
  - Gait disturbance [Not Recovered/Not Resolved]
  - Stress [Unknown]
  - Product packaging issue [Unknown]
  - Pulmonary function test decreased [Unknown]
  - Arthritis [Unknown]
  - Food aversion [Not Recovered/Not Resolved]
  - Cough [Unknown]
  - Loss of personal independence in daily activities [Not Recovered/Not Resolved]
  - Hernia [Unknown]
  - Dizziness [Unknown]
  - Skin exfoliation [Unknown]
  - Total lung capacity decreased [Not Recovered/Not Resolved]
  - Asthenia [Not Recovered/Not Resolved]
  - Epistaxis [Unknown]
  - Drug ineffective [Unknown]
  - Infection [Not Recovered/Not Resolved]
  - Cough [Recovered/Resolved]
  - Gastric polyps [Unknown]
  - Overweight [Unknown]
  - Nasal crusting [Unknown]
